FAERS Safety Report 21017899 (Version 1)
Quarter: 2022Q2

REPORT INFORMATION
  Report Type: Spontaneous
  Country: US (occurrence: None)
  Receive Date: 20220628
  Receipt Date: 20220628
  Transmission Date: 20220721
  Serious: Yes (Disabling)
  Sender: FDA-Public Use
  Company Number: None

PATIENT
  Age: 39 Year
  Sex: Female
  Weight: 84.37 kg

DRUGS (2)
  1. PARAGARD T 380A [Suspect]
     Active Substance: COPPER
  2. UNSPECIFIED INGREDIENT [Suspect]
     Active Substance: UNSPECIFIED INGREDIENT

REACTIONS (19)
  - Complication associated with device [None]
  - Weight increased [None]
  - Depression [None]
  - Anxiety [None]
  - Heavy menstrual bleeding [None]
  - Coital bleeding [None]
  - Libido decreased [None]
  - Fatigue [None]
  - Asthenia [None]
  - Premenstrual syndrome [None]
  - Headache [None]
  - Sleep disorder [None]
  - Thyroid disorder [None]
  - Acne [None]
  - Mood swings [None]
  - Progesterone decreased [None]
  - Menopausal symptoms [None]
  - Feeling abnormal [None]
  - Cognitive disorder [None]

NARRATIVE: CASE EVENT DATE: 20220627
